FAERS Safety Report 9198565 (Version 1)
Quarter: 2013Q1

REPORT INFORMATION
  Report Type: Spontaneous
  Country: US (occurrence: None)
  Receive Date: 20120709
  Receipt Date: 20120709
  Transmission Date: 20140127
  Serious: Yes (Other)
  Sender: FDA-Public Use
  Company Number: PHHY2011US39321

PATIENT
  Age: 71 Year
  Sex: Female
  Weight: 51.7 kg

DRUGS (14)
  1. GLEEVEC [Suspect]
     Route: 048
     Dates: start: 2008
  2. LASIX (FUROSEMIDE) [Concomitant]
  3. DEPO-MEDROL [Concomitant]
  4. CELEBREX [Concomitant]
  5. FUROSEMIDE [Concomitant]
  6. RECLAST [Concomitant]
  7. CARVEDILOL [Concomitant]
  8. OMEPRAZOLE [Concomitant]
  9. ALLOPURINOL [Concomitant]
  10. LOSARTAN POTASSIUM [Concomitant]
  11. MULTIVITAMINS [Concomitant]
  12. CALCIUM [Concomitant]
  13. TRAMADOL HYDROCHLORIDE [Concomitant]
  14. KLOR-CON [Concomitant]

REACTIONS (4)
  - Cardiac failure congestive [None]
  - Nausea [None]
  - Alopecia [None]
  - Red blood cell count decreased [None]
